FAERS Safety Report 18788822 (Version 1)
Quarter: 2021Q1

REPORT INFORMATION
  Report Type: Spontaneous
  Country: US (occurrence: US)
  Receive Date: 20210125
  Receipt Date: 20210125
  Transmission Date: 20210419
  Serious: No
  Sender: FDA-Public Use
  Company Number: US-ACORDA-ACO_165578_2020

PATIENT
  Age: 49 Year
  Sex: Female

DRUGS (1)
  1. AMPYRA [Suspect]
     Active Substance: DALFAMPRIDINE
     Indication: GAIT DISTURBANCE
     Dosage: UNK
     Route: 065
     Dates: start: 202006

REACTIONS (10)
  - Feeling abnormal [Unknown]
  - Fall [Unknown]
  - Fall [Unknown]
  - Multiple sclerosis relapse [Not Recovered/Not Resolved]
  - Abdominal distension [Recovered/Resolved]
  - Discomfort [Recovered/Resolved]
  - Dizziness [Unknown]
  - Balance disorder [Unknown]
  - Rib fracture [Unknown]
  - Sleep disorder [Unknown]

NARRATIVE: CASE EVENT DATE: 2020
